FAERS Safety Report 5130056-2 (Version None)
Quarter: 2006Q4

REPORT INFORMATION
  Report Type: 
  Country: None (occurrence: None)
  Receive Date: 20061013
  Receipt Date: 20061002
  Transmission Date: 20070319
  Serious: Yes (Other)
  Sender: FDA-Public Use
  Company Number: 2006119490

PATIENT
  Age: 59 Year
  Sex: Male

DRUGS (4)
  1. ATORVASTATIN CALCIUM [Suspect]
     Indication: BLOOD CHOLESTEROL INCREASED
     Dosage: 40 MG, ORAL
     Route: 048
     Dates: start: 20060316, end: 20060605
  2. INSULATARD NPH HUMAN [Concomitant]
  3. PERINDOPRIL ERBUMINE [Concomitant]
  4. ACTRAPID (INSULIN) [Concomitant]

REACTIONS (2)
  - GUTTATE PSORIASIS [None]
  - PSORIASIS [None]
